FAERS Safety Report 8996314 (Version 2)
Quarter: 2013Q2

REPORT INFORMATION
  Report Type: Spontaneous
  Country: JP (occurrence: JP)
  Receive Date: 20130103
  Receipt Date: 20130419
  Transmission Date: 20140414
  Serious: Yes (Other)
  Sender: FDA-Public Use
  Company Number: JP-AMGEN-JPNSP2012083985

PATIENT
  Sex: 0

DRUGS (4)
  1. VECTIBIX [Suspect]
     Indication: COLON CANCER
     Dosage: UNK UNK, Q2WK
     Route: 041
     Dates: start: 201211, end: 201212
  2. IRINOTECAN HYDROCHLORIDE [Concomitant]
     Dosage: UNK UNK, Q2WK
     Route: 041
  3. FLUOROURACIL [Concomitant]
     Dosage: UNK UNK, Q2WK
     Route: 042
  4. CALCIUM LEVOFOLINATE [Concomitant]
     Dosage: UNK UNK, Q2WK
     Route: 041

REACTIONS (1)
  - Interstitial lung disease [Unknown]
